FAERS Safety Report 18399343 (Version 1)
Quarter: 2020Q4

REPORT INFORMATION
  Report Type: Spontaneous
  Country: GB (occurrence: GB)
  Receive Date: 20201019
  Receipt Date: 20201019
  Transmission Date: 20210114
  Serious: Yes (Life-Threatening, Disabling)
  Sender: FDA-Public Use
  Company Number: GB-TEVA-2020-GB-1838764

PATIENT
  Age: 76 Year
  Sex: Male
  Weight: 111 kg

DRUGS (2)
  1. COLCHICINE. [Concomitant]
     Active Substance: COLCHICINE
     Dosage: FOR UP TO 3 DAYS. GIVEN 17-JAN-20 - ADDED RETROSPECTIVELY FOR NOTES. UNIT DOSE: 1500 MICROGRAM
     Dates: start: 202001, end: 20200818
  2. ALLOPURINOL. [Suspect]
     Active Substance: ALLOPURINOL
     Indication: GOUT
     Dosage: TAKE TWO DAILY FOR 2 WEEKS THEN THREE DAILY FOR TWO WEEKS THEN FOR BLOOD TEST.
     Route: 065
     Dates: start: 20200706

REACTIONS (1)
  - Dyspnoea [Recovering/Resolving]
